FAERS Safety Report 9459289 (Version 1)
Quarter: 2013Q3

REPORT INFORMATION
  Report Type: Spontaneous
  Country: JP (occurrence: JP)
  Receive Date: 20130815
  Receipt Date: 20130815
  Transmission Date: 20140515
  Serious: Yes (Hospitalization)
  Sender: FDA-Public Use
  Company Number: JP-MYLANLABS-2013S1017296

PATIENT
  Age: 48 Year
  Sex: Female

DRUGS (2)
  1. EPIRUBICIN [Suspect]
     Indication: BREAST CANCER
     Route: 041
     Dates: end: 201305
  2. ENDOXAN [Suspect]
     Indication: BREAST CANCER
     Route: 041
     Dates: end: 201305

REACTIONS (1)
  - Colitis ischaemic [Not Recovered/Not Resolved]
